FAERS Safety Report 20507573 (Version 2)
Quarter: 2022Q3

REPORT INFORMATION
  Report Type: Spontaneous
  Country: US (occurrence: US)
  Receive Date: 20220223
  Receipt Date: 20220801
  Transmission Date: 20221027
  Serious: No
  Sender: FDA-Public Use
  Company Number: US-PFIZER INC-202100986453

PATIENT
  Age: 60 Year
  Sex: Male
  Weight: 103.85 kg

DRUGS (7)
  1. INLYTA [Suspect]
     Active Substance: AXITINIB
     Indication: Renal cancer
     Dosage: EVERY 12 HOURS
     Route: 048
     Dates: start: 20210702
  2. INLYTA [Suspect]
     Active Substance: AXITINIB
     Indication: Renal cell carcinoma
     Dosage: EVERY 12 HOURS
     Route: 048
     Dates: start: 20210702
  3. CALCIUM CARBONATE [Concomitant]
     Active Substance: CALCIUM CARBONATE
     Dosage: UNK
  4. L-ASCORBIC ACID [Concomitant]
     Dosage: UNK
  5. ACETAMINOPHEN\OXYCODONE HYDROCHLORIDE [Concomitant]
     Active Substance: ACETAMINOPHEN\OXYCODONE HYDROCHLORIDE
     Dosage: UNK
  6. PROCHLORPERAZINE MALEATE [Concomitant]
     Active Substance: PROCHLORPERAZINE MALEATE
     Dosage: UNK
  7. ONDANSETRON [Concomitant]
     Active Substance: ONDANSETRON
     Dosage: UNK

REACTIONS (15)
  - Dysphonia [Recovering/Resolving]
  - Circadian rhythm sleep disorder [Recovering/Resolving]
  - Rhinorrhoea [Unknown]
  - Sneezing [Unknown]
  - Headache [Unknown]
  - Paranasal sinus discomfort [Unknown]
  - Sleep deficit [Unknown]
  - Dehydration [Unknown]
  - Feeling abnormal [Unknown]
  - Faeces pale [Unknown]
  - Diarrhoea [Unknown]
  - Weight decreased [Unknown]
  - Faeces soft [Unknown]
  - Pain in extremity [Unknown]
  - Hyperkeratosis [Unknown]
